FAERS Safety Report 10475461 (Version 1)
Quarter: 2014Q3

REPORT INFORMATION
  Report Type: Spontaneous
  Country: US (occurrence: None)
  Receive Date: 20140924
  Receipt Date: 20140924
  Transmission Date: 20150326
  Serious: Yes (Hospitalization)
  Sender: FDA-Public Use
  Company Number: None

PATIENT
  Age: 73 Year
  Sex: Female
  Weight: 86.3 kg

DRUGS (13)
  1. BC [Suspect]
     Active Substance: ASPIRIN\CAFFEINE
     Indication: HEADACHE
     Dosage: RECENT, PRN, PO
     Route: 048
  2. GLIMEPIRIDE. [Concomitant]
     Active Substance: GLIMEPIRIDE
  3. SOTALOL. [Concomitant]
     Active Substance: SOTALOL
  4. METFORMIN [Concomitant]
     Active Substance: METFORMIN HYDROCHLORIDE
  5. LEVOTHYROXINE [Concomitant]
     Active Substance: LEVOTHYROXINE
  6. VITAMIN D [Concomitant]
     Active Substance: CHOLECALCIFEROL
  7. LUTEIN [Concomitant]
     Active Substance: LUTEIN
  8. CYMBALTA [Concomitant]
     Active Substance: DULOXETINE HYDROCHLORIDE
  9. CRESTOR [Concomitant]
     Active Substance: ROSUVASTATIN CALCIUM
  10. TRAMADOL [Concomitant]
     Active Substance: TRAMADOL
  11. PRADAXA [Suspect]
     Active Substance: DABIGATRAN ETEXILATE MESYLATE
     Indication: ATRIAL FIBRILLATION
     Dosage: CHRONIC
     Route: 048
  12. BC [Suspect]
     Active Substance: ASPIRIN\CAFFEINE
     Indication: ABDOMINAL PAIN
     Dosage: RECENT, PRN, PO
     Route: 048
  13. KLOR-CON [Concomitant]
     Active Substance: POTASSIUM CHLORIDE

REACTIONS (6)
  - Gastrointestinal arteriovenous malformation [None]
  - Anaemia [None]
  - Hypoglycaemia [None]
  - Dizziness [None]
  - Fall [None]
  - Haemorrhagic arteriovenous malformation [None]

NARRATIVE: CASE EVENT DATE: 20140221
